FAERS Safety Report 15564143 (Version 2)
Quarter: 2020Q2

REPORT INFORMATION
  Report Type: Spontaneous
  Country: DE (occurrence: DE)
  Receive Date: 20181030
  Receipt Date: 20200523
  Transmission Date: 20200713
  Serious: Yes (Other)
  Sender: FDA-Public Use
  Company Number: DE-DRREDDYS-GER/GER/18/0105157

PATIENT
  Age: 81 Year
  Sex: Male

DRUGS (21)
  1. ALLOPURINOL. [Suspect]
     Active Substance: ALLOPURINOL
     Indication: PRODUCT USED FOR UNKNOWN INDICATION
     Dosage: MORGENS
     Route: 065
     Dates: start: 2018
  2. ASS 100 [Suspect]
     Active Substance: ASPIRIN
     Indication: PRODUCT USED FOR UNKNOWN INDICATION
     Dosage: MORGENS
     Route: 065
     Dates: start: 2014
  3. NOVAMINSULFON [Suspect]
     Active Substance: METAMIZOLE
     Indication: PRODUCT USED FOR UNKNOWN INDICATION
     Dosage: BEI BEDARF 2-3X T?GLICH 20-30 TROPFEN (IF NECESSARY, 20-30 DROPS 2-3 TIMES A DAY)
     Route: 065
     Dates: start: 2014
  4. CALCITRIOL. [Concomitant]
     Active Substance: CALCITRIOL
     Indication: PRODUCT USED FOR UNKNOWN INDICATION
     Route: 065
     Dates: start: 2014
  5. TORASEMID 20 [Suspect]
     Active Substance: TORSEMIDE
     Indication: PRODUCT USED FOR UNKNOWN INDICATION
     Dosage: 20 MORGENS, 20 ABENDS 20 MG, QD 1-1-0
     Dates: start: 2012
  6. TORASEMID 20 [Suspect]
     Active Substance: TORSEMIDE
     Dosage: 40 MG, QD (20 IN THE MORNING, 20 IN THE EVENING
     Route: 065
     Dates: start: 2014
  7. CANDESARTAN. [Suspect]
     Active Substance: CANDESARTAN
     Indication: PRODUCT USED FOR UNKNOWN INDICATION
     Dosage: MORGENS
     Dates: start: 20181009
  8. NOVORAPID [Suspect]
     Active Substance: INSULIN ASPART
     Indication: PRODUCT USED FOR UNKNOWN INDICATION
     Dosage: IN THE MORNING: 24, NOON: 18, IN THE EVENING: 20
     Route: 065
     Dates: start: 2014
  9. CANDESARTAN ZENTIVA [Concomitant]
     Active Substance: CANDESARTAN CILEXETIL
     Indication: PRODUCT USED FOR UNKNOWN INDICATION
     Route: 065
  10. SIMVASTATIN. [Suspect]
     Active Substance: SIMVASTATIN
     Indication: PRODUCT USED FOR UNKNOWN INDICATION
     Dosage: ABENDS
     Route: 065
     Dates: start: 2014
  11. TAMSULOSIN [Suspect]
     Active Substance: TAMSULOSIN
     Indication: PRODUCT USED FOR UNKNOWN INDICATION
     Dosage: 0,4 ABENDS 0.4 MG, QD
     Route: 065
     Dates: start: 2014
  12. LANTUS [Suspect]
     Active Substance: INSULIN GLARGINE
     Indication: PRODUCT USED FOR UNKNOWN INDICATION
     Dosage: 24 ZUR NACHT 24 IU, QD (24 FOR THE NIGHT)
     Route: 065
     Dates: start: 2018
  13. ENALAPRIL [Suspect]
     Active Substance: ENALAPRIL
     Indication: PRODUCT USED FOR UNKNOWN INDICATION
     Route: 065
  14. NOVORAPID [Suspect]
     Active Substance: INSULIN ASPART
     Dosage: IN THE MORNING, AT NOON AND IN THE EVENING BETWEEN 8 AND 40 IU BEFORE THE MEAL
     Route: 065
     Dates: start: 2012
  15. NOVORAPID [Suspect]
     Active Substance: INSULIN ASPART
     Dosage: IN THE MORNING: 24, NOON: 18, IN THE EVENING: 20
     Route: 065
     Dates: start: 2018
  16. ALLOPURINOL. [Suspect]
     Active Substance: ALLOPURINOL
     Dosage: MORGENS
     Route: 065
     Dates: start: 2014
  17. VALSACOR [Suspect]
     Active Substance: VALSARTAN
     Indication: PRODUCT USED FOR UNKNOWN INDICATION
     Dates: start: 20180903, end: 20181009
  18. AMLODIPIN 5 [Suspect]
     Active Substance: AMLODIPINE BESYLATE
     Indication: PRODUCT USED FOR UNKNOWN INDICATION
     Dosage: ABENDS 5 MG (12 HOUR)
     Route: 065
     Dates: start: 2014
  19. AMLODIPIN 5 [Suspect]
     Active Substance: AMLODIPINE BESYLATE
     Dosage: ABENDS 5 MG (12 HOUR)
     Route: 065
     Dates: start: 2018
  20. LANTUS [Suspect]
     Active Substance: INSULIN GLARGINE
     Dosage: 24 ZUR NACHT 24 IU, QD (24 FOR THE NIGHT)
     Route: 065
     Dates: start: 2014
  21. PANTOPRAZOLE [Suspect]
     Active Substance: PANTOPRAZOLE
     Indication: PROPHYLAXIS AGAINST GASTROINTESTINAL ULCER
     Dosage: NACH BEDARF MORGENS 40 MG, QD (IN THE MORNING
     Route: 065
     Dates: start: 2018

REACTIONS (15)
  - Skin haemorrhage [Unknown]
  - Injection site swelling [Unknown]
  - Chest discomfort [Unknown]
  - Pelvic pain [Unknown]
  - Nausea [Unknown]
  - Dyspnoea exertional [Unknown]
  - Blood glucose increased [Unknown]
  - Rectal tenesmus [Unknown]
  - Peripheral swelling [Unknown]
  - Asthenia [Unknown]
  - Morning sickness [Unknown]
  - Muscle spasms [Unknown]
  - Spinal pain [Unknown]
  - Dyspnoea [Unknown]
  - Myalgia [Unknown]

NARRATIVE: CASE EVENT DATE: 201809
